FAERS Safety Report 11158443 (Version 1)
Quarter: 2015Q2

REPORT INFORMATION
  Report Type: Spontaneous
  Country: US (occurrence: None)
  Receive Date: 20150514
  Receipt Date: 20150514
  Transmission Date: 20150821
  Serious: Yes (Death)
  Sender: FDA-Public Use
  Company Number: 2015010048

PATIENT
  Age: 44 Year
  Sex: Male

DRUGS (9)
  1. ACETAMINOPHEN W/OXYCODONE [Suspect]
     Active Substance: ACETAMINOPHEN\OXYCODONE HYDROCHLORIDE
  2. THIAZOLIDINEDIONE [Suspect]
     Active Substance: UNSPECIFIED INGREDIENT
  3. CITALOPRAM (CITALOPRAM) [Suspect]
     Active Substance: CITALOPRAM HYDROBROMIDE
  4. METFORMIN [Suspect]
     Active Substance: METFORMIN HYDROCHLORIDE
  5. HYDROCODONE W/ACETAMINOPHEN (HYDROCODONE, ACETAMINOPHEN) [Suspect]
     Active Substance: ACETAMINOPHEN\HYDROCODONE BITARTRATE
  6. FUROSEMIDE (FUROSEMIDE) [Suspect]
     Active Substance: FUROSEMIDE
  7. ZOLPIDEM (ZOLPIDEM) [Suspect]
     Active Substance: ZOLPIDEM TARTRATE
  8. METOPROLOL (METOPROLOL) [Suspect]
     Active Substance: METOPROLOL
  9. DIAZEPAM (DIAZEPAM) [Suspect]
     Active Substance: DIAZEPAM

REACTIONS (1)
  - Completed suicide [None]

NARRATIVE: CASE EVENT DATE: 2013
